FAERS Safety Report 11080246 (Version 1)
Quarter: 2015Q2

REPORT INFORMATION
  Report Type: Spontaneous
  Country: BR (occurrence: BR)
  Receive Date: 20150430
  Receipt Date: 20150430
  Transmission Date: 20150821
  Serious: Yes (Death, Hospitalization, Other)
  Sender: FDA-Public Use
  Company Number: BR-ALEXION PHARMACEUTICALS INC.-A201305814

PATIENT

DRUGS (2)
  1. SOLIRIS [Suspect]
     Active Substance: ECULIZUMAB
     Indication: HAEMOLYTIC URAEMIC SYNDROME
     Dosage: 600 MG, SINGLE
     Route: 042
     Dates: start: 20130514, end: 20130514
  2. SOLIRIS [Suspect]
     Active Substance: ECULIZUMAB
     Dosage: 300 MG, SINGLE
     Route: 042
     Dates: start: 20130521, end: 20130521

REACTIONS (9)
  - Lung infiltration [Unknown]
  - Obstructive airways disorder [Unknown]
  - Hypertension [Unknown]
  - Acute respiratory distress syndrome [Fatal]
  - Bradycardia [Unknown]
  - Septic shock [Fatal]
  - White blood cell disorder [Unknown]
  - Pyrexia [Unknown]
  - Fungal sepsis [Fatal]

NARRATIVE: CASE EVENT DATE: 20130519
